FAERS Safety Report 4597789-8 (Version None)
Quarter: 2005Q1

REPORT INFORMATION
  Report Type: 
  Country: None (occurrence: None)
  Receive Date: 20050303
  Receipt Date: 20041122
  Transmission Date: 20050727
  Serious: Yes (Death)
  Sender: FDA-Public Use
  Company Number: US-MERCK-0411USA03654

PATIENT
  Sex: Male

DRUGS (2)
  1. VIOXX [Suspect]
     Indication: PAIN
     Route: 048
     Dates: start: 20010101, end: 20020601
  2. VIOXX [Suspect]
     Indication: SPINAL COLUMN STENOSIS
     Route: 048
     Dates: start: 20010101, end: 20020601

REACTIONS (1)
  - MYOCARDIAL INFARCTION [None]
